FAERS Safety Report 18755597 (Version 1)
Quarter: 2021Q1

REPORT INFORMATION
  Report Type: Spontaneous
  Country: US (occurrence: US)
  Receive Date: 20210115
  Receipt Date: 20210115
  Transmission Date: 20210419
  Serious: Yes (Hospitalization)
  Sender: FDA-Public Use
  Company Number: None

PATIENT
  Sex: Female

DRUGS (6)
  1. VERZENIO [Suspect]
     Active Substance: ABEMACICLIB
     Indication: BREAST CANCER FEMALE
     Dosage: ?          OTHER FREQUENCY:EVERY 12 HOURS;?
     Route: 048
     Dates: start: 20200923
  2. CALICUM 600 [Concomitant]
  3. ASPIRIN. [Concomitant]
     Active Substance: ASPIRIN
  4. PROBIOTIC [Concomitant]
     Active Substance: PROBIOTICS NOS
  5. DESVENLAFAX [Concomitant]
  6. EXMESTATINE [Concomitant]

REACTIONS (4)
  - Surgery [None]
  - Product dose omission in error [None]
  - Diarrhoea [None]
  - White blood cell count decreased [None]
